FAERS Safety Report 20262749 (Version 1)
Quarter: 2021Q4

REPORT INFORMATION
  Report Type: Spontaneous
  Country: DE (occurrence: DE)
  Receive Date: 20211231
  Receipt Date: 20211231
  Transmission Date: 20220303
  Serious: Yes (Hospitalization)
  Sender: FDA-Public Use
  Company Number: DE-ADRED-05776-01

PATIENT
  Age: 49 Year
  Sex: Male
  Weight: 65 kg

DRUGS (8)
  1. FLUOROURACIL [Suspect]
     Active Substance: FLUOROURACIL
     Dosage: INJECTION / INFUSION SOLUTION
     Route: 042
  2. MORPHINE [Concomitant]
     Active Substance: MORPHINE
     Dosage: 2, EIGHT DROPS IN THE MORNING IF NECESSARY, DROPS, MERCK 2%
     Route: 048
  3. INNOHEP [Concomitant]
     Active Substance: TINZAPARIN SODIUM
     Dosage: 1 DOSAGE FORMS DAILY; 20000 | 0.7 IU / ML, 0-0-1-0, PRE-FILLED SYRINGES,
     Route: 058
  4. METAMIZOL [Concomitant]
     Active Substance: METAMIZOLE SODIUM
     Dosage: 500 MG / ML, FOUR TIMES FORTY DROPS,
     Route: 048
  5. TEMAZEP [Concomitant]
     Dosage: 10 MG,  ,CT  IF NECESSARY,
     Route: 048
  6. LOPERAMIDE [Concomitant]
     Active Substance: LOPERAMIDE
     Dosage: 2 MG, IF NECESSARY, ACUTE ARISTO
     Route: 048
  7. MORPHINE SULFATE [Concomitant]
     Active Substance: MORPHINE SULFATE
     Dosage: 10 MILLIGRAM DAILY; 10 MG, 0-0-1-0,
     Route: 048
  8. MCP [Concomitant]
     Active Substance: METOCLOPRAMIDE HYDROCHLORIDE
     Dosage: 30 MILLIGRAM DAILY;  1-1-1-0, ,RATIOPHARM 10MG
     Route: 048

REACTIONS (6)
  - Penile swelling [Unknown]
  - General physical health deterioration [Unknown]
  - Dysuria [Unknown]
  - Diarrhoea [Unknown]
  - Fatigue [Unknown]
  - Abdominal pain [Unknown]
